FAERS Safety Report 20304124 (Version 1)
Quarter: 2022Q1

REPORT INFORMATION
  Report Type: Spontaneous
  Country: US (occurrence: None)
  Receive Date: 20220105
  Receipt Date: 20220105
  Transmission Date: 20220423
  Serious: No
  Sender: FDA-Public Use
  Company Number: None

PATIENT
  Age: 65 Year
  Sex: Female

DRUGS (1)
  1. COSENTYX [Suspect]
     Active Substance: SECUKINUMAB
     Route: 058
     Dates: start: 20210920

REACTIONS (4)
  - Pain in extremity [None]
  - Arthralgia [None]
  - Gait inability [None]
  - Nail disorder [None]

NARRATIVE: CASE EVENT DATE: 20220105
